FAERS Safety Report 16385020 (Version 2)
Quarter: 2019Q3

REPORT INFORMATION
  Report Type: Report from Study
  Country: FR (occurrence: FR)
  Receive Date: 20190603
  Receipt Date: 20190730
  Transmission Date: 20191004
  Serious: Yes (Hospitalization, Disabling, Other)
  Sender: FDA-Public Use
  Company Number: FR-PFIZER INC-2019235857

PATIENT
  Age: 45 Year
  Sex: Male
  Weight: 85 kg

DRUGS (7)
  1. INNOHEP [Concomitant]
     Active Substance: TINZAPARIN SODIUM
     Indication: EMBOLISM
     Dosage: 16000 IU, 1X/DAY
     Route: 058
     Dates: start: 201801
  2. CRIZOTINIB [Concomitant]
     Active Substance: CRIZOTINIB
     Dosage: UNKNOWN
     Route: 048
     Dates: start: 201802, end: 201809
  3. XARELTO [Concomitant]
     Active Substance: RIVAROXABAN
     Dosage: UNKNOWN
     Route: 048
  4. CISPLATIN. [Concomitant]
     Active Substance: CISPLATIN
     Dosage: UNKNOWN
     Route: 042
     Dates: start: 201801, end: 201802
  5. LORLATINIB [Suspect]
     Active Substance: LORLATINIB
     Indication: LUNG ADENOCARCINOMA
     Dosage: 100 MG, DAILY
     Route: 048
     Dates: start: 20180925, end: 20190513
  6. INNOHEP [Concomitant]
     Active Substance: TINZAPARIN SODIUM
     Dosage: 1600 IU, DAILY
     Route: 042
  7. ALIMTA [Concomitant]
     Active Substance: PEMETREXED DISODIUM
     Dosage: UNKNOWN
     Route: 042
     Dates: start: 201801, end: 201802

REACTIONS (5)
  - Lumbar vertebral fracture [Unknown]
  - Foot fracture [Unknown]
  - Fall [Unknown]
  - Psychotic disorder [Not Recovered/Not Resolved]
  - Hallucination [Not Recovered/Not Resolved]

NARRATIVE: CASE EVENT DATE: 201904
